FAERS Safety Report 25533911 (Version 2)
Quarter: 2025Q4

REPORT INFORMATION
  Report Type: Spontaneous
  Country: US (occurrence: US)
  Receive Date: 20250709
  Receipt Date: 20251015
  Transmission Date: 20260118
  Serious: No
  Sender: SANOFI AVENTIS
  Company Number: US-SA-2025SA192750

PATIENT
  Age: 40 Year
  Sex: Female
  Weight: 68.18 kg

DRUGS (6)
  1. DUPIXENT [Suspect]
     Active Substance: DUPILUMAB
     Indication: Neurodermatitis
     Dosage: 600 MG, 1X
     Route: 058
  2. DUPIXENT [Suspect]
     Active Substance: DUPILUMAB
     Dosage: 300 MG, QOW
     Route: 058
  3. PREDNISONE [Concomitant]
     Active Substance: PREDNISONE
  4. DESONIDE [Concomitant]
     Active Substance: DESONIDE
  5. ALPRAZOLAM [Concomitant]
     Active Substance: ALPRAZOLAM
  6. SUBOXONE [Concomitant]
     Active Substance: BUPRENORPHINE HYDROCHLORIDE\NALOXONE HYDROCHLORIDE

REACTIONS (5)
  - Illness [Unknown]
  - Wound [Unknown]
  - Product dose omission issue [Unknown]
  - Neurodermatitis [Unknown]
  - Rebound effect [Unknown]

NARRATIVE: CASE EVENT DATE: 20251001
